FAERS Safety Report 7436680-6 (Version None)
Quarter: 2011Q2

REPORT INFORMATION
  Report Type: 
  Country: None (occurrence: None)
  Receive Date: 20110426
  Receipt Date: 20110421
  Transmission Date: 20111010
  Serious: Yes (Other)
  Sender: FDA-Public Use
  Company Number: US-ELI_LILLY_AND_COMPANY-US200909001693

PATIENT
  Sex: Male

DRUGS (18)
  1. VITAMIN D [Concomitant]
     Dosage: 50000 IU, WEEKLY (1/W)
  2. SPIRONOLACTONE [Concomitant]
  3. CRESTOR [Concomitant]
  4. DIOVAN [Concomitant]
  5. SYNTHROID [Concomitant]
  6. NASONEX [Concomitant]
  7. LISINOPRIL [Concomitant]
  8. METOPROLOL [Concomitant]
  9. ZETIA [Concomitant]
  10. FUROSEMIDE [Concomitant]
  11. PLAVIX [Concomitant]
  12. NIASPAN [Concomitant]
  13. LANTUS [Concomitant]
  14. AMBIEN [Concomitant]
  15. ASPIRIN [Concomitant]
  16. OMEPRAZOLE [Concomitant]
  17. HUMALOG [Suspect]
     Dosage: UNK, AS NEEDED
     Dates: start: 20080101
  18. SALIX [Concomitant]

REACTIONS (3)
  - CONSTIPATION [None]
  - DEAFNESS [None]
  - BLOOD GLUCOSE DECREASED [None]
